FAERS Safety Report 8048599-0 (Version None)
Quarter: 2012Q1

REPORT INFORMATION
  Report Type: 
  Country: None (occurrence: None)
  Receive Date: 20120117
  Receipt Date: 20120111
  Transmission Date: 20120608
  Serious: Yes (Life-Threatening)
  Sender: FDA-Public Use
  Company Number: JP-PFIZER INC-2012008678

PATIENT
  Age: 69 Year
  Sex: Male

DRUGS (1)
  1. SOLU-MEDROL [Suspect]
     Indication: SHOCK
     Dosage: 1000 MG/DAY
     Route: 042
     Dates: start: 20110511, end: 20110511

REACTIONS (1)
  - ANAPHYLACTIC SHOCK [None]
